FAERS Safety Report 15764761 (Version 4)
Quarter: 2022Q1

REPORT INFORMATION
  Report Type: Spontaneous
  Country: DE (occurrence: DE)
  Receive Date: 20181227
  Receipt Date: 20220214
  Transmission Date: 20220423
  Serious: Yes (Hospitalization, Other)
  Sender: FDA-Public Use
  Company Number: DE-TEVA-2018-DE-991581

PATIENT
  Age: 65 Year
  Sex: Female

DRUGS (3)
  1. VALSARTAN [Suspect]
     Active Substance: VALSARTAN
     Indication: Blood pressure measurement
     Dosage: 0.5 TABLETS PER DAY
     Route: 048
  2. BISOPROLOL [Concomitant]
     Active Substance: BISOPROLOL
     Dosage: .5 MILLIGRAM DAILY;
  3. ASPIRIN [Concomitant]
     Active Substance: ASPIRIN
     Dosage: 100 MILLIGRAM DAILY;

REACTIONS (27)
  - Breast cancer [Unknown]
  - Product impurity [Unknown]
  - Depression [Unknown]
  - Fear of disease [Unknown]
  - Anxiety [Not Recovered/Not Resolved]
  - Heart rate increased [Not Recovered/Not Resolved]
  - Hyperhidrosis [Unknown]
  - Sense of oppression [Unknown]
  - Dizziness [Unknown]
  - Paraesthesia [Unknown]
  - Restlessness [Unknown]
  - Merycism [Unknown]
  - Memory impairment [Unknown]
  - Disturbance in attention [Unknown]
  - Disturbance in attention [Unknown]
  - Apathy [Unknown]
  - Irritability [Unknown]
  - Initial insomnia [Unknown]
  - Psychiatric symptom [Unknown]
  - Poor quality sleep [Unknown]
  - Sleep disorder [Unknown]
  - Restlessness [Unknown]
  - Nervousness [Unknown]
  - Adjustment disorder [Unknown]
  - Anxiety [Unknown]
  - Palpitations [Unknown]
  - Obsessive thoughts [Unknown]

NARRATIVE: CASE EVENT DATE: 20120101
